FAERS Safety Report 14018320 (Version 1)
Quarter: 2017Q3

REPORT INFORMATION
  Report Type: Spontaneous
  Country: US (occurrence: US)
  Receive Date: 20170927
  Receipt Date: 20170927
  Transmission Date: 20171128
  Serious: Yes (Death)
  Sender: FDA-Public Use
  Company Number: None

PATIENT
  Age: 57 Year
  Sex: Female
  Weight: 98.8 kg

DRUGS (6)
  1. GABAPENTIN. [Concomitant]
     Active Substance: GABAPENTIN
  2. ORBACTIV [Suspect]
     Active Substance: ORITAVANCIN
     Indication: SKIN ULCER
     Dosage: ?          OTHER FREQUENCY:ONE TIME DOSE;?
     Route: 042
     Dates: start: 20170903, end: 20170903
  3. ORBACTIV [Suspect]
     Active Substance: ORITAVANCIN
     Indication: INFECTION
     Dosage: ?          OTHER FREQUENCY:ONE TIME DOSE;?
     Route: 042
     Dates: start: 20170903, end: 20170903
  4. LEVOFLOXACIN. [Concomitant]
     Active Substance: LEVOFLOXACIN
  5. SERTRALINE [Concomitant]
     Active Substance: SERTRALINE HYDROCHLORIDE
  6. CLONAZEPAM. [Concomitant]
     Active Substance: CLONAZEPAM

REACTIONS (5)
  - Urticaria [None]
  - Blister [None]
  - Cardiac arrest [None]
  - Pruritus [None]
  - Pulseless electrical activity [None]

NARRATIVE: CASE EVENT DATE: 20170903
